FAERS Safety Report 4567348-1 (Version None)
Quarter: 2005Q1

REPORT INFORMATION
  Report Type: 
  Country: None (occurrence: None)
  Receive Date: 20050127
  Receipt Date: 20050111
  Transmission Date: 20050727
  Serious: Yes (Other)
  Sender: FDA-Public Use
  Company Number: 26040

PATIENT
  Age: 4 Year
  Sex: Female

DRUGS (1)
  1. ALDARA [Suspect]
     Indication: SKIN PAPILLOMA
     Dosage: (0.1 SACHET, 1 IN 1 DAY (S), TOPICAL
     Route: 061
     Dates: start: 20040801, end: 20040801

REACTIONS (2)
  - ECZEMA [None]
  - NAIL PSORIASIS [None]
